FAERS Safety Report 8479964-5 (Version None)
Quarter: 2012Q2

REPORT INFORMATION
  Report Type: 
  Country: None (occurrence: None)
  Receive Date: 20120629
  Receipt Date: 20120618
  Transmission Date: 20120825
  Serious: Yes (Hospitalization, Other)
  Sender: FDA-Public Use
  Company Number: IE-MEDIMMUNE-MEDI-0014699

PATIENT
  Age: 8 Week
  Sex: Male
  Weight: 2.1 kg

DRUGS (4)
  1. FERINSOL [Concomitant]
     Dosage: ONCE DAILY
     Route: 048
  2. SYNAGIS [Suspect]
     Route: 030
     Dates: start: 20111202, end: 20111202
  3. KAPSOVIT [Concomitant]
     Dosage: ONCE DAILY
     Route: 048
  4. SYNAGIS [Suspect]
     Indication: PREMATURE BABY
     Route: 030
     Dates: start: 20111104, end: 20111104

REACTIONS (1)
  - INGUINAL HERNIA [None]
